FAERS Safety Report 4895513-2 (Version None)
Quarter: 2006Q1

REPORT INFORMATION
  Report Type: 
  Country: None (occurrence: None)
  Receive Date: 20060130
  Receipt Date: 20060126
  Transmission Date: 20060701
  Serious: Yes (Death)
  Sender: FDA-Public Use
  Company Number: 2006UW01396

PATIENT
  Age: 29 Year
  Sex: Male

DRUGS (1)
  1. SEROQUEL [Suspect]
     Dosage: 200 MG IN AM/600 MG HS
     Route: 048

REACTIONS (5)
  - COMPLETED SUICIDE [None]
  - CONVULSION [None]
  - FALL [None]
  - INTENTIONAL OVERDOSE [None]
  - OVERDOSE [None]
